FAERS Safety Report 20694419 (Version 1)
Quarter: 2022Q2

REPORT INFORMATION
  Report Type: Spontaneous
  Country: US (occurrence: US)
  Receive Date: 20220411
  Receipt Date: 20220411
  Transmission Date: 20220721
  Serious: No
  Sender: FDA-Public Use
  Company Number: US-JNJFOC-20220409434

PATIENT
  Sex: Female

DRUGS (3)
  1. MOTRIN IB [Suspect]
     Active Substance: IBUPROFEN
     Indication: Pain
     Route: 065
  2. MOTRIN IB [Suspect]
     Active Substance: IBUPROFEN
     Indication: Headache
  3. MOTRIN IB [Suspect]
     Active Substance: IBUPROFEN
     Indication: Dysmenorrhoea

REACTIONS (1)
  - Abdominal discomfort [Unknown]
